FAERS Safety Report 19237357 (Version 2)
Quarter: 2021Q2

REPORT INFORMATION
  Report Type: Report from Study
  Country: US (occurrence: US)
  Receive Date: 20210510
  Receipt Date: 20210524
  Transmission Date: 20210717
  Serious: Yes (Other)
  Sender: FDA-Public Use
  Company Number: NVSC2021US095254

PATIENT
  Sex: Female

DRUGS (2)
  1. AFINITOR [Suspect]
     Active Substance: EVEROLIMUS
     Indication: PRODUCT USED FOR UNKNOWN INDICATION
     Dosage: UNK
     Route: 065
  2. AFINITOR [Suspect]
     Active Substance: EVEROLIMUS
     Dosage: 10 MG, QD
     Route: 048

REACTIONS (8)
  - Ageusia [Unknown]
  - Metastases to breast [Unknown]
  - Metastases to stomach [Unknown]
  - Peripheral swelling [Unknown]
  - Sleep disorder [Unknown]
  - Fluid retention [Unknown]
  - Insomnia [Unknown]
  - Neoplasm progression [Unknown]
